FAERS Safety Report 8084246 (Version 3)
Quarter: 2013Q4

REPORT INFORMATION
  Report Type: Spontaneous
  Country: US (occurrence: US)
  Receive Date: 20110810
  Receipt Date: 20131016
  Transmission Date: 20140711
  Serious: Yes (Other)
  Sender: FDA-Public Use
  Company Number: US-ROCHE-794358

PATIENT
  Age: 22 Year
  Sex: Male
  Weight: 74.91 kg

DRUGS (1)
  1. ACCUTANE [Suspect]
     Indication: ACNE CYSTIC
     Route: 065
     Dates: start: 1996, end: 2001

REACTIONS (12)
  - Proctitis ulcerative [Unknown]
  - Gastritis [Unknown]
  - Gastrooesophageal reflux disease [Unknown]
  - Inflammatory bowel disease [Unknown]
  - Back pain [Unknown]
  - Intervertebral disc degeneration [Unknown]
  - Arthralgia [Unknown]
  - Syncope [Unknown]
  - Lip dry [Unknown]
  - Myalgia [Unknown]
  - Epistaxis [Unknown]
  - Dry skin [Unknown]
